FAERS Safety Report 8344891-0 (Version None)
Quarter: 2012Q2

REPORT INFORMATION
  Report Type: 
  Country: None (occurrence: None)
  Receive Date: 20120508
  Receipt Date: 20100114
  Transmission Date: 20120825
  Serious: Yes (Hospitalization, Other)
  Sender: FDA-Public Use
  Company Number: US-TEVA-2010000167

PATIENT
  Sex: Male

DRUGS (8)
  1. NICOTINE [Suspect]
     Route: 062
     Dates: start: 20091201
  2. PHENERGAN [Suspect]
     Indication: NAUSEA
     Route: 048
     Dates: start: 19990101
  3. GABITRIL [Suspect]
     Indication: CONVULSION
     Dosage: 12 MILLIGRAM;
     Route: 048
     Dates: start: 19990101
  4. ATIVAN [Suspect]
     Indication: CONVULSION
     Route: 048
     Dates: start: 19990101
  5. TEGRETOL [Suspect]
     Indication: CONVULSION
     Dosage: 1600 MILLIGRAM;
     Route: 048
     Dates: start: 19990101
  6. NICOTINE [Suspect]
     Indication: SMOKING CESSATION THERAPY
     Route: 062
     Dates: start: 20091201, end: 20091201
  7. CLORAZEPATE DIPOTASSIUM [Suspect]
     Indication: CONVULSION
     Dosage: 4 UNKNOWN;
     Route: 048
     Dates: start: 19990101
  8. DIAMOX [Suspect]
     Indication: CONVULSION
     Dosage: 1000 MILLIGRAM;
     Route: 048
     Dates: start: 19990101

REACTIONS (6)
  - DIZZINESS [None]
  - LOWER LIMB FRACTURE [None]
  - NAUSEA [None]
  - CONVULSION [None]
  - SOMNOLENCE [None]
  - PARTIAL SEIZURES [None]
